FAERS Safety Report 8257797-2 (Version None)
Quarter: 2012Q2

REPORT INFORMATION
  Report Type: 
  Country: None (occurrence: None)
  Receive Date: 20120404
  Receipt Date: 20120326
  Transmission Date: 20120825
  Serious: No
  Sender: FDA-Public Use
  Company Number: US-BIOGENIDEC-2012BI010729

PATIENT
  Age: 57 Year
  Sex: Male

DRUGS (2)
  1. STEROID [Concomitant]
     Route: 042
  2. TYSABRI [Suspect]
     Indication: MULTIPLE SCLEROSIS
     Route: 042
     Dates: start: 20120302

REACTIONS (2)
  - HYPOAESTHESIA [None]
  - JOINT SWELLING [None]
